FAERS Safety Report 9723928 (Version 2)
Quarter: 2014Q3

REPORT INFORMATION
  Report Type: Report from Study
  Country: US (occurrence: US)
  Receive Date: 20131202
  Receipt Date: 20140905
  Transmission Date: 20150326
  Serious: Yes (Hospitalization, Other)
  Sender: FDA-Public Use
  Company Number: US-IPSEN BIOPHARMACEUTICALS, INC.-2013-5238

PATIENT
  Age: 47 Year
  Sex: Female

DRUGS (6)
  1. SOMATULINE DEPOT [Suspect]
     Active Substance: LANREOTIDE ACETATE
     Indication: ACROMEGALY
     Dosage: 90 MG
     Route: 058
     Dates: start: 20130809, end: 201406
  2. ATIVAN [Concomitant]
     Active Substance: LORAZEPAM
     Indication: PRODUCT USED FOR UNKNOWN INDICATION
     Dosage: 1 PILL 30 MIN PRIOR TO MRI, 1/2 AFTER PROCEDURE
     Route: 048
  3. SYNTHROID [Concomitant]
     Active Substance: LEVOTHYROXINE SODIUM
     Indication: PRODUCT USED FOR UNKNOWN INDICATION
     Route: 048
  4. GLUCOPHAGE [Concomitant]
     Active Substance: METFORMIN HYDROCHLORIDE
     Indication: PRODUCT USED FOR UNKNOWN INDICATION
     Route: 048
  5. VITAMIN D-3 PO [Concomitant]
     Indication: PRODUCT USED FOR UNKNOWN INDICATION
     Route: 048
  6. MAXZIDE [Concomitant]
     Active Substance: HYDROCHLOROTHIAZIDE\TRIAMTERENE
     Indication: PRODUCT USED FOR UNKNOWN INDICATION
     Dosage: 75MG/50MG, 1/2 TABLET
     Route: 048

REACTIONS (9)
  - Fatigue [Unknown]
  - Neoplasm [Recovered/Resolved with Sequelae]
  - Thyroid function test abnormal [Unknown]
  - Weight decreased [Unknown]
  - Neck pain [Unknown]
  - Galactorrhoea [Recovered/Resolved]
  - Gastrointestinal disorder [Unknown]
  - Adrenal insufficiency [Unknown]
  - Fluid retention [Unknown]

NARRATIVE: CASE EVENT DATE: 2013
